FAERS Safety Report 23958630 (Version 1)
Quarter: 2024Q2

REPORT INFORMATION
  Report Type: Report from Study
  Country: ES (occurrence: ES)
  Receive Date: 20240610
  Receipt Date: 20240610
  Transmission Date: 20240715
  Serious: Yes (Other)
  Sender: FDA-Public Use
  Company Number: ES-GILEAD-2024-0675547

PATIENT

DRUGS (2)
  1. REMDESIVIR [Suspect]
     Active Substance: REMDESIVIR
     Indication: COVID-19
     Dosage: SINGLE DOSE OF 200 MG
     Route: 065
  2. REMDESIVIR [Suspect]
     Active Substance: REMDESIVIR
     Dosage: 2?4 MORE DAILY DOSES OF 100 MG
     Route: 065

REACTIONS (1)
  - Pneumonia bacterial [Unknown]
